FAERS Safety Report 14101303 (Version 2)
Quarter: 2017Q4

REPORT INFORMATION
  Report Type: Report from Study
  Country: CN (occurrence: CN)
  Receive Date: 20171018
  Receipt Date: 20171027
  Transmission Date: 20180321
  Serious: Yes (Hospitalization)
  Sender: FDA-Public Use
  Company Number: CN-ASTRAZENECA-2017SF05556

PATIENT
  Age: 26271 Day
  Sex: Male

DRUGS (136)
  1. ISOSORBIDE MONONITRATE. [Concomitant]
     Active Substance: ISOSORBIDE MONONITRATE
     Indication: CORONARY ARTERY DISEASE
     Route: 048
     Dates: start: 20170815, end: 20170822
  2. SPIRONOLACTONE. [Concomitant]
     Active Substance: SPIRONOLACTONE
     Indication: CORONARY ARTERY DISEASE
     Route: 048
     Dates: start: 20170208
  3. NIFEDIPINE. [Concomitant]
     Active Substance: NIFEDIPINE
     Indication: HYPERTENSION
     Route: 048
     Dates: start: 2015, end: 20161026
  4. TORASEMIDE [Concomitant]
     Active Substance: TORSEMIDE
     Indication: HYPERTENSION
     Route: 048
     Dates: start: 2014, end: 20170203
  5. TORASEMIDE [Concomitant]
     Active Substance: TORSEMIDE
     Indication: HYPERTENSION
     Route: 030
     Dates: start: 20161203, end: 20161212
  6. TORASEMIDE [Concomitant]
     Active Substance: TORSEMIDE
     Indication: CORONARY ARTERY DISEASE
     Route: 030
     Dates: start: 20170203, end: 20170208
  7. TORASEMIDE [Concomitant]
     Active Substance: TORSEMIDE
     Indication: CORONARY ARTERY DISEASE
     Route: 048
     Dates: start: 20170218, end: 20170620
  8. COENZYME Q10 AND SODIUM CHLORIDE [Concomitant]
     Indication: CHEST DISCOMFORT
     Route: 041
     Dates: start: 20161203, end: 20161212
  9. COENZYME Q10 AND SODIUM CHLORIDE [Concomitant]
     Indication: CORONARY ARTERY DISEASE
     Route: 041
     Dates: start: 20170615, end: 20170620
  10. COENZYME Q10 AND SODIUM CHLORIDE [Concomitant]
     Indication: CHEST DISCOMFORT
     Route: 041
     Dates: start: 20170628, end: 20170628
  11. VINPOCETINE [Concomitant]
     Active Substance: VINPOCETINE
     Indication: DIZZINESS
     Route: 041
     Dates: start: 20170330, end: 20170410
  12. VINPOCETINE [Concomitant]
     Active Substance: VINPOCETINE
     Indication: DIZZINESS
     Route: 048
     Dates: start: 20170417, end: 20170428
  13. VINPOCETINE [Concomitant]
     Active Substance: VINPOCETINE
     Indication: CORONARY ARTERY DISEASE
     Route: 041
     Dates: start: 20170615, end: 20170620
  14. POTASSIUM MAGNESIUM ASPARTATE [Concomitant]
     Active Substance: MAGNESIUM ASPARTATE\POTASSIUM ASPARTATE
     Indication: CORONARY ARTERY DISEASE
     Route: 041
     Dates: start: 20170615, end: 20170615
  15. POTASSIUM CHLORIDE. [Concomitant]
     Active Substance: POTASSIUM CHLORIDE
     Indication: ANGINA PECTORIS
     Route: 041
     Dates: start: 20170607, end: 20170607
  16. BISACODYL. [Concomitant]
     Active Substance: BISACODYL
     Indication: CONSTIPATION
     Route: 048
     Dates: start: 20170815, end: 20170822
  17. NIFEDIPINE. [Concomitant]
     Active Substance: NIFEDIPINE
     Indication: HYPERTENSION
     Route: 048
     Dates: start: 20161031, end: 20161121
  18. TORASEMIDE [Concomitant]
     Active Substance: TORSEMIDE
     Indication: CORONARY ARTERY DISEASE
     Route: 041
     Dates: start: 20161121, end: 20161125
  19. TORASEMIDE [Concomitant]
     Active Substance: TORSEMIDE
     Indication: HYPERTENSION
     Route: 030
     Dates: start: 20170203, end: 20170208
  20. COENZYME Q10 AND SODIUM CHLORIDE [Concomitant]
     Indication: LUNG INFECTION
     Route: 041
     Dates: start: 20161027, end: 20161103
  21. COENZYME Q10 AND SODIUM CHLORIDE [Concomitant]
     Indication: CORONARY ARTERY DISEASE
     Route: 041
     Dates: start: 20161121, end: 20161201
  22. COENZYME Q10 AND SODIUM CHLORIDE [Concomitant]
     Indication: CHEST DISCOMFORT
     Route: 041
     Dates: start: 20170129, end: 20170129
  23. COENZYME Q10 AND SODIUM CHLORIDE [Concomitant]
     Indication: LUNG INFECTION
     Route: 041
     Dates: start: 20170219, end: 20170219
  24. COENZYME Q10 AND SODIUM CHLORIDE [Concomitant]
     Indication: CHEST DISCOMFORT
     Route: 041
     Dates: start: 20170607, end: 20170607
  25. LEVOCARNITINE. [Concomitant]
     Active Substance: LEVOCARNITINE
     Indication: CORONARY ARTERY DISEASE
     Route: 041
     Dates: start: 20161027, end: 20161103
  26. LEVOCARNITINE. [Concomitant]
     Active Substance: LEVOCARNITINE
     Indication: CORONARY ARTERY DISEASE
     Route: 041
     Dates: start: 20170615, end: 20170620
  27. POTASSIUM CHLORIDE. [Concomitant]
     Active Substance: POTASSIUM CHLORIDE
     Indication: ANGINA PECTORIS
     Dates: start: 20170207, end: 20170207
  28. POTASSIUM CHLORIDE. [Concomitant]
     Active Substance: POTASSIUM CHLORIDE
     Indication: CORONARY ARTERY DISEASE
     Dosage: 2 G, FRACTIONATED AFTER DILUTION
     Route: 048
     Dates: start: 20170405, end: 20170405
  29. POTASSIUM CHLORIDE. [Concomitant]
     Active Substance: POTASSIUM CHLORIDE
     Indication: CORONARY ARTERY DISEASE
     Route: 041
     Dates: start: 20170607, end: 20170607
  30. POTASSIUM CHLORIDE. [Concomitant]
     Active Substance: POTASSIUM CHLORIDE
     Indication: ANGINA PECTORIS
     Dosage: 40 ML, FRACTIONATED AFTER DILUTION
     Route: 048
     Dates: start: 20170820, end: 20170820
  31. CINNARIZINE [Concomitant]
     Active Substance: CINNARIZINE
     Indication: DIZZINESS
     Route: 048
     Dates: start: 20170616, end: 20170620
  32. BISACODYL. [Concomitant]
     Active Substance: BISACODYL
     Indication: CONSTIPATION
     Route: 048
     Dates: start: 20170615, end: 20170620
  33. ATORVASTATIN CALCIUM. [Concomitant]
     Active Substance: ATORVASTATIN CALCIUM
     Indication: CORONARY ARTERY DISEASE
     Route: 048
     Dates: start: 2014
  34. ISOSORBIDE MONONITRATE. [Concomitant]
     Active Substance: ISOSORBIDE MONONITRATE
     Indication: CORONARY ARTERY DISEASE
     Route: 048
     Dates: start: 2014
  35. ISOSORBIDE MONONITRATE. [Concomitant]
     Active Substance: ISOSORBIDE MONONITRATE
     Indication: CORONARY ARTERY DISEASE
     Route: 041
     Dates: start: 20161203, end: 20161211
  36. ISOSORBIDE MONONITRATE. [Concomitant]
     Active Substance: ISOSORBIDE MONONITRATE
     Indication: CORONARY ARTERY DISEASE
     Route: 048
     Dates: start: 20170516, end: 20170524
  37. CILOSTAZOL. [Concomitant]
     Active Substance: CILOSTAZOL
     Indication: HYPERTENSION
     Route: 048
     Dates: start: 201502, end: 20160816
  38. TORASEMIDE [Concomitant]
     Active Substance: TORSEMIDE
     Indication: CORONARY ARTERY DISEASE
     Route: 041
     Dates: start: 20170615, end: 20170620
  39. COENZYME Q10 AND SODIUM CHLORIDE [Concomitant]
     Indication: LUNG INFECTION
     Route: 041
     Dates: start: 20161203, end: 20161212
  40. COENZYME Q10 AND SODIUM CHLORIDE [Concomitant]
     Indication: CHEST DISCOMFORT
     Route: 041
     Dates: start: 20170202, end: 20170202
  41. COENZYME Q10 AND SODIUM CHLORIDE [Concomitant]
     Indication: CORONARY ARTERY DISEASE
     Route: 041
     Dates: start: 20170330, end: 20170410
  42. COENZYME Q10 AND SODIUM CHLORIDE [Concomitant]
     Indication: CHEST DISCOMFORT
     Route: 041
     Dates: start: 20170815, end: 20170822
  43. COENZYME Q10 AND SODIUM CHLORIDE [Concomitant]
     Indication: LUNG INFECTION
     Route: 041
     Dates: start: 20170815, end: 20170822
  44. VINPOCETINE [Concomitant]
     Active Substance: VINPOCETINE
     Indication: CORONARY ARTERY DISEASE
     Route: 041
     Dates: start: 20161125, end: 20161201
  45. VINPOCETINE [Concomitant]
     Active Substance: VINPOCETINE
     Indication: CORONARY ARTERY DISEASE
     Route: 041
     Dates: start: 20161203, end: 20161212
  46. VINPOCETINE [Concomitant]
     Active Substance: VINPOCETINE
     Indication: DIZZINESS
     Route: 041
     Dates: start: 20170208, end: 20170214
  47. VINPOCETINE [Concomitant]
     Active Substance: VINPOCETINE
     Indication: DIZZINESS
     Route: 041
     Dates: start: 20170516, end: 20170524
  48. VINPOCETINE [Concomitant]
     Active Substance: VINPOCETINE
     Indication: DIZZINESS
     Route: 041
     Dates: start: 20170615, end: 20170620
  49. VINPOCETINE [Concomitant]
     Active Substance: VINPOCETINE
     Indication: CORONARY ARTERY DISEASE
     Route: 041
     Dates: start: 20170831, end: 20170831
  50. POTASSIUM MAGNESIUM ASPARTATE [Concomitant]
     Active Substance: MAGNESIUM ASPARTATE\POTASSIUM ASPARTATE
     Indication: CORONARY ARTERY DISEASE
     Route: 041
     Dates: start: 20170516, end: 20170524
  51. POTASSIUM CHLORIDE. [Concomitant]
     Active Substance: POTASSIUM CHLORIDE
     Indication: ANGINA PECTORIS
     Dosage: 2 G, FRACTIONATED AFTER DILUTION
     Route: 048
     Dates: start: 20170405, end: 20170405
  52. POTASSIUM CHLORIDE. [Concomitant]
     Active Substance: POTASSIUM CHLORIDE
     Indication: ANGINA PECTORIS
     Route: 048
     Dates: start: 20170615, end: 20170620
  53. BISACODYL. [Concomitant]
     Active Substance: BISACODYL
     Indication: CONSTIPATION
     Route: 048
     Dates: start: 20170206, end: 20170214
  54. SPIRONOLACTONE. [Concomitant]
     Active Substance: SPIRONOLACTONE
     Indication: CORONARY ARTERY DISEASE
     Route: 048
     Dates: start: 2014, end: 20170203
  55. BENAZEPRIL [Concomitant]
     Active Substance: BENAZEPRIL HYDROCHLORIDE
     Indication: HYPERTENSION
     Route: 048
     Dates: start: 20170206, end: 20170208
  56. TORASEMIDE [Concomitant]
     Active Substance: TORSEMIDE
     Indication: HYPERTENSION
     Route: 048
     Dates: start: 20170620, end: 20170628
  57. TORASEMIDE [Concomitant]
     Active Substance: TORSEMIDE
     Indication: HYPERTENSION
     Route: 048
     Dates: start: 20170628
  58. COENZYME Q10 AND SODIUM CHLORIDE [Concomitant]
     Indication: CORONARY ARTERY DISEASE
     Route: 041
     Dates: start: 20161203, end: 20161212
  59. COENZYME Q10 AND SODIUM CHLORIDE [Concomitant]
     Indication: CHEST DISCOMFORT
     Route: 041
     Dates: start: 20170516, end: 20170524
  60. COENZYME Q10 AND SODIUM CHLORIDE [Concomitant]
     Indication: LUNG INFECTION
     Route: 041
     Dates: start: 20170628, end: 20170628
  61. VINPOCETINE [Concomitant]
     Active Substance: VINPOCETINE
     Indication: CORONARY ARTERY DISEASE
     Route: 041
     Dates: start: 20170817, end: 20170822
  62. POTASSIUM MAGNESIUM ASPARTATE [Concomitant]
     Active Substance: MAGNESIUM ASPARTATE\POTASSIUM ASPARTATE
     Indication: CORONARY ARTERY DISEASE
     Route: 041
     Dates: start: 20170330, end: 20170410
  63. POTASSIUM CHLORIDE. [Concomitant]
     Active Substance: POTASSIUM CHLORIDE
     Indication: CORONARY ARTERY DISEASE
     Route: 048
     Dates: start: 20170203, end: 20170214
  64. POTASSIUM CHLORIDE. [Concomitant]
     Active Substance: POTASSIUM CHLORIDE
     Indication: ANGINA PECTORIS
     Route: 048
     Dates: start: 20170406, end: 20170406
  65. POTASSIUM CHLORIDE. [Concomitant]
     Active Substance: POTASSIUM CHLORIDE
     Indication: CORONARY ARTERY DISEASE
     Dosage: 40 ML, FRACTIONATED AFTER DILUTION
     Route: 048
     Dates: start: 20170820, end: 20170820
  66. TRIMETAZIDINE DIHYDROCHLORIDE [Concomitant]
     Active Substance: TRIMETAZIDINE DIHYDROCHLORIDE
     Indication: CORONARY ARTERY DISEASE
     Route: 048
     Dates: start: 2014
  67. SPIRONOLACTONE. [Concomitant]
     Active Substance: SPIRONOLACTONE
     Indication: CORONARY ARTERY DISEASE
     Route: 048
     Dates: start: 20170203, end: 20170208
  68. BENAZEPRIL [Concomitant]
     Active Substance: BENAZEPRIL HYDROCHLORIDE
     Indication: HYPERTENSION
     Route: 048
     Dates: start: 20170214
  69. NIFEDIPINE. [Concomitant]
     Active Substance: NIFEDIPINE
     Indication: HYPERTENSION
     Route: 048
     Dates: start: 20161121, end: 20161203
  70. NIFEDIPINE. [Concomitant]
     Active Substance: NIFEDIPINE
     Indication: HYPERTENSION
     Route: 048
     Dates: start: 20161205, end: 20170206
  71. CLOPIDOGREL [Concomitant]
     Active Substance: CLOPIDOGREL BISULFATE
     Indication: CORONARY ARTERY DISEASE
     Route: 048
     Dates: start: 20161121, end: 20161128
  72. COENZYME Q10 AND SODIUM CHLORIDE [Concomitant]
     Indication: CORONARY ARTERY DISEASE
     Route: 041
     Dates: start: 20170516, end: 20170524
  73. COENZYME Q10 AND SODIUM CHLORIDE [Concomitant]
     Indication: LUNG INFECTION
     Route: 041
     Dates: start: 20170615, end: 20170620
  74. LEVOCARNITINE. [Concomitant]
     Active Substance: LEVOCARNITINE
     Indication: CORONARY ARTERY DISEASE
     Route: 041
     Dates: start: 20161203, end: 20161212
  75. VINPOCETINE [Concomitant]
     Active Substance: VINPOCETINE
     Indication: DIZZINESS
     Route: 041
     Dates: start: 20170628, end: 20170706
  76. VINPOCETINE [Concomitant]
     Active Substance: VINPOCETINE
     Indication: DIZZINESS
     Route: 041
     Dates: start: 20170831, end: 20170831
  77. POTASSIUM CHLORIDE. [Concomitant]
     Active Substance: POTASSIUM CHLORIDE
     Indication: ANGINA PECTORIS
     Route: 041
     Dates: start: 20170208, end: 20170214
  78. POTASSIUM CHLORIDE. [Concomitant]
     Active Substance: POTASSIUM CHLORIDE
     Indication: ANGINA PECTORIS
     Route: 048
     Dates: start: 20170406, end: 20170410
  79. ISOSORBIDE MONONITRATE. [Concomitant]
     Active Substance: ISOSORBIDE MONONITRATE
     Indication: CORONARY ARTERY DISEASE
     Route: 048
     Dates: start: 20170615, end: 20170814
  80. TORASEMIDE [Concomitant]
     Active Substance: TORSEMIDE
     Indication: CORONARY ARTERY DISEASE
     Route: 048
     Dates: start: 20170628
  81. COENZYME Q10 AND SODIUM CHLORIDE [Concomitant]
     Indication: CHEST DISCOMFORT
     Route: 041
     Dates: start: 20161027, end: 20161103
  82. COENZYME Q10 AND SODIUM CHLORIDE [Concomitant]
     Indication: LUNG INFECTION
     Route: 041
     Dates: start: 20170129, end: 20170129
  83. COENZYME Q10 AND SODIUM CHLORIDE [Concomitant]
     Indication: LUNG INFECTION
     Route: 041
     Dates: start: 20170202, end: 20170202
  84. COENZYME Q10 AND SODIUM CHLORIDE [Concomitant]
     Indication: CHEST DISCOMFORT
     Route: 041
     Dates: start: 20170219, end: 20170219
  85. COENZYME Q10 AND SODIUM CHLORIDE [Concomitant]
     Indication: LUNG INFECTION
     Route: 041
     Dates: start: 20170516, end: 20170524
  86. COENZYME Q10 AND SODIUM CHLORIDE [Concomitant]
     Indication: CORONARY ARTERY DISEASE
     Route: 041
     Dates: start: 20170607, end: 20170607
  87. COENZYME Q10 AND SODIUM CHLORIDE [Concomitant]
     Indication: CHEST DISCOMFORT
     Route: 041
     Dates: start: 20170615, end: 20170620
  88. COENZYME Q10 AND SODIUM CHLORIDE [Concomitant]
     Indication: CORONARY ARTERY DISEASE
     Route: 041
     Dates: start: 20170827, end: 20170827
  89. VINPOCETINE [Concomitant]
     Active Substance: VINPOCETINE
     Indication: CORONARY ARTERY DISEASE
     Route: 041
     Dates: start: 20170208, end: 20170214
  90. POTASSIUM CHLORIDE. [Concomitant]
     Active Substance: POTASSIUM CHLORIDE
     Indication: ANGINA PECTORIS
     Route: 048
     Dates: start: 20170203, end: 20170214
  91. POTASSIUM CHLORIDE. [Concomitant]
     Active Substance: POTASSIUM CHLORIDE
     Indication: CORONARY ARTERY DISEASE
     Dates: start: 20170207, end: 20170207
  92. POTASSIUM CHLORIDE. [Concomitant]
     Active Substance: POTASSIUM CHLORIDE
     Indication: CORONARY ARTERY DISEASE
     Route: 041
     Dates: start: 20170208, end: 20170214
  93. POTASSIUM CHLORIDE. [Concomitant]
     Active Substance: POTASSIUM CHLORIDE
     Indication: CORONARY ARTERY DISEASE
     Route: 048
     Dates: start: 20170406, end: 20170410
  94. EPANOVA [Suspect]
     Active Substance: OMEGA-3-CARBOXYLIC ACIDS
     Indication: HYPERTRIGLYCERIDAEMIA
     Route: 048
     Dates: start: 20160927
  95. NIFEDIPINE. [Concomitant]
     Active Substance: NIFEDIPINE
     Indication: HYPERTENSION
     Route: 048
     Dates: start: 20161027, end: 20161030
  96. NIFEDIPINE. [Concomitant]
     Active Substance: NIFEDIPINE
     Indication: HYPERTENSION
     Route: 048
     Dates: start: 20161203, end: 20161205
  97. NIFEDIPINE. [Concomitant]
     Active Substance: NIFEDIPINE
     Indication: HYPERTENSION
     Route: 048
     Dates: start: 20170218
  98. TORASEMIDE [Concomitant]
     Active Substance: TORSEMIDE
     Indication: CORONARY ARTERY DISEASE
     Route: 048
     Dates: start: 2014, end: 20170203
  99. TORASEMIDE [Concomitant]
     Active Substance: TORSEMIDE
     Indication: HYPERTENSION
     Route: 041
     Dates: start: 20161121, end: 20161125
  100. TORASEMIDE [Concomitant]
     Active Substance: TORSEMIDE
     Indication: HYPERTENSION
     Route: 048
     Dates: start: 20170218, end: 20170620
  101. TORASEMIDE [Concomitant]
     Active Substance: TORSEMIDE
     Indication: HYPERTENSION
     Route: 041
     Dates: start: 20170615, end: 20170620
  102. TORASEMIDE [Concomitant]
     Active Substance: TORSEMIDE
     Indication: CORONARY ARTERY DISEASE
     Route: 048
     Dates: start: 20170620, end: 20170628
  103. CLOPIDOGREL [Concomitant]
     Active Substance: CLOPIDOGREL BISULFATE
     Indication: CORONARY ARTERY DISEASE
     Route: 048
     Dates: start: 20170307
  104. COENZYME Q10 AND SODIUM CHLORIDE [Concomitant]
     Indication: CHEST DISCOMFORT
     Route: 041
     Dates: start: 20170330, end: 20170410
  105. COENZYME Q10 AND SODIUM CHLORIDE [Concomitant]
     Indication: CORONARY ARTERY DISEASE
     Route: 041
     Dates: start: 20170628, end: 20170628
  106. COENZYME Q10 AND SODIUM CHLORIDE [Concomitant]
     Indication: CORONARY ARTERY DISEASE
     Route: 041
     Dates: start: 20170815, end: 20170822
  107. COENZYME Q10 AND SODIUM CHLORIDE [Concomitant]
     Indication: CHEST DISCOMFORT
     Route: 041
     Dates: start: 20170827, end: 20170827
  108. COENZYME Q10 AND SODIUM CHLORIDE [Concomitant]
     Indication: LUNG INFECTION
     Route: 041
     Dates: start: 20170827, end: 20170827
  109. VINPOCETINE [Concomitant]
     Active Substance: VINPOCETINE
     Indication: DIZZINESS
     Route: 041
     Dates: start: 20161125, end: 20161201
  110. VINPOCETINE [Concomitant]
     Active Substance: VINPOCETINE
     Indication: DIZZINESS
     Route: 041
     Dates: start: 20170817, end: 20170822
  111. POTASSIUM CHLORIDE. [Concomitant]
     Active Substance: POTASSIUM CHLORIDE
     Indication: CORONARY ARTERY DISEASE
     Route: 048
     Dates: start: 20161203, end: 20161212
  112. POTASSIUM CHLORIDE. [Concomitant]
     Active Substance: POTASSIUM CHLORIDE
     Indication: ANGINA PECTORIS
     Route: 048
     Dates: start: 20161203, end: 20161212
  113. POTASSIUM CHLORIDE. [Concomitant]
     Active Substance: POTASSIUM CHLORIDE
     Indication: CORONARY ARTERY DISEASE
     Route: 048
     Dates: start: 20170406, end: 20170406
  114. POTASSIUM CHLORIDE. [Concomitant]
     Active Substance: POTASSIUM CHLORIDE
     Indication: CORONARY ARTERY DISEASE
     Route: 048
     Dates: start: 20170615, end: 20170620
  115. GLICLAZIDE [Concomitant]
     Active Substance: GLICLAZIDE
     Indication: DIABETES MELLITUS
     Route: 048
     Dates: start: 20161216, end: 20170614
  116. ALLOPURINOL. [Concomitant]
     Active Substance: ALLOPURINOL
     Indication: GOUT
     Route: 048
     Dates: start: 2015
  117. CILOSTAZOL. [Concomitant]
     Active Substance: CILOSTAZOL
     Indication: HYPERTENSION
     Route: 048
     Dates: start: 20161027
  118. TORASEMIDE [Concomitant]
     Active Substance: TORSEMIDE
     Indication: CORONARY ARTERY DISEASE
     Route: 030
     Dates: start: 20161203, end: 20161212
  119. CLOPIDOGREL [Concomitant]
     Active Substance: CLOPIDOGREL BISULFATE
     Indication: CORONARY ARTERY DISEASE
     Route: 048
     Dates: start: 20161128, end: 20161203
  120. COENZYME Q10 AND SODIUM CHLORIDE [Concomitant]
     Indication: CORONARY ARTERY DISEASE
     Route: 041
     Dates: start: 20161027, end: 20161103
  121. COENZYME Q10 AND SODIUM CHLORIDE [Concomitant]
     Indication: CHEST DISCOMFORT
     Route: 041
     Dates: start: 20161121, end: 20161201
  122. COENZYME Q10 AND SODIUM CHLORIDE [Concomitant]
     Indication: LUNG INFECTION
     Route: 041
     Dates: start: 20161121, end: 20161201
  123. COENZYME Q10 AND SODIUM CHLORIDE [Concomitant]
     Indication: CORONARY ARTERY DISEASE
     Route: 041
     Dates: start: 20170129, end: 20170129
  124. COENZYME Q10 AND SODIUM CHLORIDE [Concomitant]
     Indication: CORONARY ARTERY DISEASE
     Route: 041
     Dates: start: 20170202, end: 20170202
  125. COENZYME Q10 AND SODIUM CHLORIDE [Concomitant]
     Indication: CORONARY ARTERY DISEASE
     Route: 041
     Dates: start: 20170219, end: 20170219
  126. COENZYME Q10 AND SODIUM CHLORIDE [Concomitant]
     Indication: LUNG INFECTION
     Route: 041
     Dates: start: 20170330, end: 20170410
  127. COENZYME Q10 AND SODIUM CHLORIDE [Concomitant]
     Indication: LUNG INFECTION
     Route: 041
     Dates: start: 20170607, end: 20170607
  128. LEVOCARNITINE. [Concomitant]
     Active Substance: LEVOCARNITINE
     Indication: CORONARY ARTERY DISEASE
     Route: 041
     Dates: start: 20161121, end: 20161201
  129. LEVOCARNITINE. [Concomitant]
     Active Substance: LEVOCARNITINE
     Indication: CORONARY ARTERY DISEASE
     Route: 041
     Dates: start: 20170628, end: 20170706
  130. VINPOCETINE [Concomitant]
     Active Substance: VINPOCETINE
     Indication: DIZZINESS
     Route: 041
     Dates: start: 20161203, end: 20161212
  131. VINPOCETINE [Concomitant]
     Active Substance: VINPOCETINE
     Indication: CORONARY ARTERY DISEASE
     Route: 041
     Dates: start: 20170330, end: 20170410
  132. VINPOCETINE [Concomitant]
     Active Substance: VINPOCETINE
     Indication: CORONARY ARTERY DISEASE
     Route: 048
     Dates: start: 20170417, end: 20170428
  133. VINPOCETINE [Concomitant]
     Active Substance: VINPOCETINE
     Indication: CORONARY ARTERY DISEASE
     Route: 041
     Dates: start: 20170516, end: 20170524
  134. VINPOCETINE [Concomitant]
     Active Substance: VINPOCETINE
     Indication: CORONARY ARTERY DISEASE
     Route: 041
     Dates: start: 20170628, end: 20170706
  135. GLICLAZIDE [Concomitant]
     Active Substance: GLICLAZIDE
     Indication: DIABETES MELLITUS
     Route: 048
     Dates: start: 20170615, end: 20170822
  136. GLICLAZIDE [Concomitant]
     Active Substance: GLICLAZIDE
     Indication: DIABETES MELLITUS
     Route: 048
     Dates: start: 20170823

REACTIONS (1)
  - Angina unstable [Recovered/Resolved]

NARRATIVE: CASE EVENT DATE: 20170628
